FAERS Safety Report 18033549 (Version 1)
Quarter: 2020Q3

REPORT INFORMATION
  Report Type: Spontaneous
  Country: HR (occurrence: HR)
  Receive Date: 20200716
  Receipt Date: 20200716
  Transmission Date: 20201103
  Serious: Yes (Other)
  Sender: FDA-Public Use
  Company Number: HR-TEVA-2020-HR-1800586

PATIENT
  Age: 21 Year
  Sex: Female
  Weight: 61 kg

DRUGS (1)
  1. DOKSICIKLIN [Suspect]
     Active Substance: DOXYCYCLINE
     Indication: BETA HAEMOLYTIC STREPTOCOCCAL INFECTION
     Dosage: 2X100MG/12H, 100 MG
     Route: 048
     Dates: start: 20200616

REACTIONS (2)
  - Dysmenorrhoea [Not Recovered/Not Resolved]
  - Haemorrhage [Not Recovered/Not Resolved]

NARRATIVE: CASE EVENT DATE: 20200616
